FAERS Safety Report 10040053 (Version 2)
Quarter: 2014Q2

REPORT INFORMATION
  Report Type: Spontaneous
  Country: US (occurrence: US)
  Receive Date: 20140326
  Receipt Date: 20140403
  Transmission Date: 20141212
  Serious: No
  Sender: FDA-Public Use
  Company Number: US-GILEAD-2014-0097893

PATIENT
  Sex: Female

DRUGS (4)
  1. LETAIRIS [Suspect]
     Indication: PRODUCT USED FOR UNKNOWN INDICATION
     Dosage: 10 MG, QD
     Route: 065
     Dates: start: 20131113
  2. LETAIRIS [Suspect]
     Dates: start: 20131113
  3. TYVASO [Concomitant]
     Indication: PRODUCT USED FOR UNKNOWN INDICATION
     Route: 065
  4. VELETRI [Concomitant]
     Indication: PRODUCT USED FOR UNKNOWN INDICATION
     Route: 065

REACTIONS (3)
  - Condition aggravated [Unknown]
  - Right ventricular systolic pressure increased [Unknown]
  - Dyspnoea [Unknown]
